FAERS Safety Report 7517887-6 (Version None)
Quarter: 2011Q2

REPORT INFORMATION
  Report Type: 
  Country: None (occurrence: None)
  Receive Date: 20110527
  Receipt Date: 20110527
  Transmission Date: 20111010
  Serious: Yes (Life-Threatening, Hospitalization)
  Sender: FDA-Public Use
  Company Number: None

PATIENT
  Sex: Female

DRUGS (2)
  1. VICODIN [Suspect]
     Indication: PAIN
     Dosage: 5/500 PO
     Route: 048
  2. DIAZEPAM [Suspect]
     Indication: ANXIETY
     Dosage: 10MG PO
     Route: 048

REACTIONS (4)
  - TOXICOLOGIC TEST ABNORMAL [None]
  - SOMNOLENCE [None]
  - LETHARGY [None]
  - MULTIPLE DRUG OVERDOSE [None]
